FAERS Safety Report 8477903-4 (Version None)
Quarter: 2012Q2

REPORT INFORMATION
  Report Type: 
  Country: None (occurrence: None)
  Receive Date: 20120629
  Receipt Date: 20120622
  Transmission Date: 20120825
  Serious: Yes (Death)
  Sender: FDA-Public Use
  Company Number: ES-SANOFI-AVENTIS-2012SA036356

PATIENT
  Age: 63 Year
  Sex: Male
  Weight: 105 kg

DRUGS (24)
  1. JEVTANA KIT [Suspect]
     Route: 041
     Dates: start: 20120417, end: 20120417
  2. IRBESARTAN AND HYDROCHLOROTHIAZIDE [Concomitant]
     Dosage: 12.5 MG/150 MG DOSE
  3. LACTULOSE [Concomitant]
     Indication: CONSTIPATION
  4. ATROVENT [Concomitant]
  5. ALBUTEROL SULATE [Concomitant]
     Indication: BRONCHOSPASM
     Route: 055
  6. JEVTANA KIT [Suspect]
     Indication: PROSTATE CANCER METASTATIC
     Route: 041
     Dates: start: 20120306, end: 20120306
  7. ESCITALOPRAM [Concomitant]
     Indication: ANXIETY
  8. DEXAMETHASONE [Concomitant]
     Indication: PREMEDICATION
     Route: 042
  9. OMEPRAZOLE [Concomitant]
     Indication: PROPHYLAXIS
  10. NEBIVOLOL [Concomitant]
  11. LYRICA [Concomitant]
  12. SERC [Concomitant]
     Indication: VERTIGO
  13. RANITIDINE [Concomitant]
     Indication: PREMEDICATION
     Route: 042
  14. JEVTANA KIT [Suspect]
     Route: 041
     Dates: start: 20120324, end: 20120324
  15. CALCIUM [Concomitant]
  16. CLORAZEPATE DIPOTASSIUM [Concomitant]
     Indication: ANXIETY
  17. ENOXAPARIN SODIUM [Concomitant]
     Route: 058
  18. DURAGESIC-100 [Concomitant]
     Indication: BONE PAIN
  19. ONDANSETRON [Concomitant]
     Indication: PREMEDICATION
     Route: 042
  20. CHLORPHENIRAMINE MALEATE [Concomitant]
     Indication: PREMEDICATION
     Route: 042
  21. ZOLEDRONIC ACID [Concomitant]
     Indication: PROSTATE CANCER METASTATIC
     Route: 042
  22. JEVTANA KIT [Suspect]
     Route: 041
     Dates: start: 20120508, end: 20120508
  23. PREDNISONE [Concomitant]
     Indication: PROSTATE CANCER
  24. NEUPOGEN [Concomitant]
     Indication: PROPHYLAXIS
     Dates: start: 20120418, end: 20120422

REACTIONS (1)
  - SUDDEN DEATH [None]
